FAERS Safety Report 22068214 (Version 4)
Quarter: 2023Q2

REPORT INFORMATION
  Report Type: Spontaneous
  Country: GB (occurrence: GB)
  Receive Date: 20230307
  Receipt Date: 20230613
  Transmission Date: 20230722
  Serious: Yes (Hospitalization, Other)
  Sender: FDA-Public Use
  Company Number: GB-Hikma Pharmaceuticals USA Inc.-GB-H14001-23-00695

PATIENT
  Age: 61 Year
  Sex: Female
  Weight: 80 kg

DRUGS (5)
  1. CARBOPLATIN [Suspect]
     Active Substance: CARBOPLATIN
     Indication: Anal cancer
     Dosage: AUC 4
     Route: 042
     Dates: start: 20221103, end: 20230126
  2. RETIFANLIMAB [Suspect]
     Active Substance: RETIFANLIMAB
     Indication: Anal cancer
     Route: 042
     Dates: start: 20221103, end: 20230126
  3. RETIFANLIMAB [Suspect]
     Active Substance: RETIFANLIMAB
     Dosage: UNKNOWN
     Route: 065
     Dates: start: 20230302
  4. PACLITAXEL [Suspect]
     Active Substance: PACLITAXEL
     Indication: Anal cancer
     Route: 042
     Dates: start: 20221103, end: 20230208
  5. PACLITAXEL [Suspect]
     Active Substance: PACLITAXEL
     Route: 042
     Dates: start: 20230302

REACTIONS (3)
  - Renal impairment [Recovered/Resolved]
  - Nausea [Unknown]
  - Diarrhoea [Unknown]

NARRATIVE: CASE EVENT DATE: 20230208
